FAERS Safety Report 21153857 (Version 1)
Quarter: 2022Q3

REPORT INFORMATION
  Report Type: Spontaneous
  Country: FR (occurrence: FR)
  Receive Date: 20220801
  Receipt Date: 20220801
  Transmission Date: 20221027
  Serious: Yes (Death, Other)
  Sender: FDA-Public Use
  Company Number: FR-AFSSAPS-AVLY20220329

PATIENT
  Age: 56 Year
  Sex: Male

DRUGS (3)
  1. PAROXETINE [Suspect]
     Active Substance: PAROXETINE
     Dosage: UNK
  2. ALCOHOL [Suspect]
     Active Substance: ALCOHOL
     Dosage: INCONNUE
     Dates: end: 202110
  3. MORPHINE [Suspect]
     Active Substance: MORPHINE
     Dosage: INCONNUE
     Dates: end: 202110

REACTIONS (2)
  - Poisoning deliberate [Fatal]
  - Respiratory depression [Fatal]
